FAERS Safety Report 8954410 (Version 1)
Quarter: 2012Q4

REPORT INFORMATION
  Report Type: Report from Study
  Country: US (occurrence: US)
  Receive Date: 20121207
  Receipt Date: 20121207
  Transmission Date: 20130627
  Serious: Yes (Hospitalization)
  Sender: FDA-Public Use
  Company Number: US-BRISTOL-MYERS SQUIBB COMPANY-17172594

PATIENT
  Age: 70 Year
  Sex: Female
  Weight: 92.3 kg

DRUGS (12)
  1. MDX-1106 [Suspect]
     Indication: MALIGNANT MELANOMA STAGE IV
     Dosage: Route: IV piggyback,
No of courses: 3,Last dose:Oct12, week 9 dose held
     Route: 042
     Dates: start: 20120926, end: 20121107
  2. IPILIMUMAB [Suspect]
     Indication: MALIGNANT MELANOMA STAGE IV
     Dosage: Route: IV piggyback,
No of courses: 3,Last dose:17Oct12,week 9 dose held
     Route: 042
     Dates: start: 20120926, end: 20121107
  3. CLOXACILLIN [Concomitant]
     Dosage: Clobex
     Dates: start: 20121121
  4. ATIVAN [Concomitant]
     Dates: start: 2011
  5. CEFADROXIL [Concomitant]
  6. METOPROLOL [Concomitant]
     Dosage: Metoprolol ER
     Dates: start: 2002
  7. SYNTHROID [Concomitant]
     Dates: start: 1980
  8. MIRALAX [Concomitant]
     Dates: start: 2011
  9. ACTOS [Concomitant]
     Dates: start: 2002
  10. DIOVAN [Concomitant]
     Dates: start: 2007
  11. METFORMIN [Concomitant]
     Dates: start: 1992
  12. SLOW-MAG [Concomitant]
     Dates: start: 2010

REACTIONS (2)
  - Myocarditis [Not Recovered/Not Resolved]
  - Troponin I increased [Not Recovered/Not Resolved]
